FAERS Safety Report 15112909 (Version 5)
Quarter: 2018Q3

REPORT INFORMATION
  Report Type: Report from Study
  Country: US (occurrence: US)
  Receive Date: 20180705
  Receipt Date: 20180825
  Transmission Date: 20181010
  Serious: No
  Sender: FDA-Public Use
  Company Number: PHEH2018US027716

PATIENT
  Age: 46 Year
  Sex: Female

DRUGS (7)
  1. ALEVE [Concomitant]
     Active Substance: NAPROXEN SODIUM
     Indication: PRODUCT USED FOR UNKNOWN INDICATION
     Dosage: UNK UNK, PRN
     Route: 065
  2. CLINDAMYCIN. [Concomitant]
     Active Substance: CLINDAMYCIN
     Indication: PRODUCT USED FOR UNKNOWN INDICATION
     Route: 065
  3. VENLAFAXINE [Concomitant]
     Active Substance: VENLAFAXINE HYDROCHLORIDE
     Indication: PRODUCT USED FOR UNKNOWN INDICATION
     Route: 065
  4. GILENYA [Suspect]
     Active Substance: FINGOLIMOD HYDROCHLORIDE
     Indication: MULTIPLE SCLEROSIS
     Dosage: 0.5 MG, QD
     Route: 048
     Dates: start: 20180619
  5. GILENYA [Suspect]
     Active Substance: FINGOLIMOD HYDROCHLORIDE
     Dosage: 0.5 UNK, UNK
     Route: 048
     Dates: start: 20180622
  6. TRETINOIN. [Concomitant]
     Active Substance: TRETINOIN
     Indication: PRODUCT USED FOR UNKNOWN INDICATION
     Route: 065
  7. OXYCOD [Concomitant]
     Indication: PRODUCT USED FOR UNKNOWN INDICATION
     Route: 065

REACTIONS (7)
  - Headache [Recovered/Resolved]
  - Abdominal pain [Unknown]
  - Back pain [Unknown]
  - Muscle spasms [Unknown]
  - Fatigue [Unknown]
  - Nasopharyngitis [Recovered/Resolved]
  - Blepharospasm [Unknown]

NARRATIVE: CASE EVENT DATE: 20180619
